FAERS Safety Report 9920557 (Version 1)
Quarter: 2014Q1

REPORT INFORMATION
  Report Type: Other
  Country: US (occurrence: US)
  Receive Date: 20140224
  Receipt Date: 20140224
  Transmission Date: 20141002
  Serious: Yes (Hospitalization, Other)
  Sender: FDA-Public Use
  Company Number: US-RB-063717-14

PATIENT
  Age: 37 Year
  Sex: Female

DRUGS (3)
  1. BUPRENORPHINE/NALOXONE UNSPECIFIED [Suspect]
     Indication: DRUG DEPENDENCE
     Dosage: DOSING DETAILS UNKNOWN
     Route: 065
  2. FENTANYL PATCH [Suspect]
     Indication: PAIN MANAGEMENT
     Dosage: DOSING DETAILS UNKNOWN
     Route: 062
  3. KETOROLAC [Suspect]
     Indication: PAIN MANAGEMENT
     Route: 065

REACTIONS (3)
  - Breast disorder [Unknown]
  - Pain [Unknown]
  - Inadequate analgesia [Recovered/Resolved]
